FAERS Safety Report 20194342 (Version 1)
Quarter: 2021Q4

REPORT INFORMATION
  Report Type: Spontaneous
  Country: DE (occurrence: DE)
  Receive Date: 20211216
  Receipt Date: 20211216
  Transmission Date: 20220303
  Serious: Yes (Death, Hospitalization, Other)
  Sender: FDA-Public Use
  Company Number: DE-ALVOGEN-2021-ALVOGEN-117934

PATIENT
  Age: 14 Day

DRUGS (1)
  1. VORICONAZOLE [Suspect]
     Active Substance: VORICONAZOLE
     Indication: Aspergillus infection

REACTIONS (2)
  - Multiple organ dysfunction syndrome [Fatal]
  - Sepsis [Fatal]
